FAERS Safety Report 19649739 (Version 1)
Quarter: 2021Q3

REPORT INFORMATION
  Report Type: Spontaneous
  Country: US (occurrence: US)
  Receive Date: 20210803
  Receipt Date: 20210803
  Transmission Date: 20211014
  Serious: No
  Sender: FDA-Public Use
  Company Number: US-STRIDES ARCOLAB LIMITED-2021SP006126

PATIENT
  Age: 69 Year
  Sex: Female

DRUGS (3)
  1. MYCOPHENOLATE MOFETIL. [Suspect]
     Active Substance: MYCOPHENOLATE MOFETIL
     Indication: LICHEN PLANUS
     Dosage: 1000 MILLIGRAM, QD
     Route: 065
  2. CLOBETASOL 0.05% [Suspect]
     Active Substance: CLOBETASOL
     Indication: LICHEN PLANUS
     Dosage: 0.05 PERCENT, BID
     Route: 065
  3. TRIAMCINOLONE [Suspect]
     Active Substance: TRIAMCINOLONE
     Indication: LICHEN PLANUS
     Dosage: 0.1 PERCENT, BID
     Route: 065

REACTIONS (2)
  - Off label use [Unknown]
  - Anaemia [Not Recovered/Not Resolved]
